FAERS Safety Report 17216607 (Version 2)
Quarter: 2021Q1

REPORT INFORMATION
  Report Type: Spontaneous
  Country: US (occurrence: US)
  Receive Date: 20191230
  Receipt Date: 20210323
  Transmission Date: 20210419
  Serious: Yes (Other)
  Sender: FDA-Public Use
  Company Number: US-ASTRAZENECA-2019SF88939

PATIENT
  Age: 16037 Day
  Sex: Female
  Weight: 49.9 kg

DRUGS (31)
  1. ONDASETRON [Concomitant]
     Active Substance: ONDANSETRON
  2. ZOFRAN [Concomitant]
     Active Substance: ONDANSETRON HYDROCHLORIDE
  3. PYRIDOXINE [Concomitant]
     Active Substance: PYRIDOXINE
  4. RISPERIDONE. [Concomitant]
     Active Substance: RISPERIDONE
  5. TRAZODONE [Concomitant]
     Active Substance: TRAZODONE HYDROCHLORIDE
  6. PRILOSEC [Suspect]
     Active Substance: OMEPRAZOLE MAGNESIUM
     Indication: GASTROOESOPHAGEAL REFLUX DISEASE
     Route: 048
     Dates: start: 201401, end: 201612
  7. DICYCLOMINE [Concomitant]
     Active Substance: DICYCLOMINE HYDROCHLORIDE
  8. NITROGLYCERIN. [Concomitant]
     Active Substance: NITROGLYCERIN
  9. ALPRAZOLAM. [Concomitant]
     Active Substance: ALPRAZOLAM
  10. LORATADINE. [Concomitant]
     Active Substance: LORATADINE
  11. PRILOSEC [Suspect]
     Active Substance: OMEPRAZOLE MAGNESIUM
     Indication: GASTROOESOPHAGEAL REFLUX DISEASE
     Route: 048
     Dates: start: 2014
  12. METOCLOPRAMIDE. [Concomitant]
     Active Substance: METOCLOPRAMIDE
  13. VANCOMYCIN [Concomitant]
     Active Substance: VANCOMYCIN
  14. RAMELTEON [Concomitant]
     Active Substance: RAMELTEON
  15. SUCRALFATE. [Concomitant]
     Active Substance: SUCRALFATE
  16. MORPHINE [Concomitant]
     Active Substance: MORPHINE
  17. VALSARTAN. [Concomitant]
     Active Substance: VALSARTAN
  18. METRONIDAZOLE. [Concomitant]
     Active Substance: METRONIDAZOLE
  19. HYDROCHLOROTHIAZIDE. [Concomitant]
     Active Substance: HYDROCHLOROTHIAZIDE
  20. BENZOTROPINE [Concomitant]
     Active Substance: BENZTROPINE
  21. ATORVASTATIN [Concomitant]
     Active Substance: ATORVASTATIN
  22. HYDRALAZINE [Concomitant]
     Active Substance: HYDRALAZINE HYDROCHLORIDE
  23. DOCUSATE SODIUM. [Concomitant]
     Active Substance: DOCUSATE SODIUM
  24. XANAX [Concomitant]
     Active Substance: ALPRAZOLAM
  25. ASPIRIN. [Concomitant]
     Active Substance: ASPIRIN
  26. SERTRALINE [Concomitant]
     Active Substance: SERTRALINE HYDROCHLORIDE
  27. TUMS [Concomitant]
     Active Substance: CALCIUM CARBONATE
  28. DIPHENHYDRAMINE. [Concomitant]
     Active Substance: DIPHENHYDRAMINE
  29. CLONIDINE. [Concomitant]
     Active Substance: CLONIDINE
  30. AMLODIPINE [Concomitant]
     Active Substance: AMLODIPINE BESYLATE
  31. ACETAMINOPHEN. [Concomitant]
     Active Substance: ACETAMINOPHEN

REACTIONS (3)
  - Chronic kidney disease [Unknown]
  - Acute kidney injury [Not Recovered/Not Resolved]
  - Renal failure [Unknown]

NARRATIVE: CASE EVENT DATE: 20110611
